FAERS Safety Report 8455574-0 (Version None)
Quarter: 2012Q2

REPORT INFORMATION
  Report Type: 
  Country: None (occurrence: None)
  Receive Date: 20120621
  Receipt Date: 20120611
  Transmission Date: 20120825
  Serious: Yes (Other)
  Sender: FDA-Public Use
  Company Number: DE-ASTRAZENECA-2012SE40949

PATIENT
  Sex: Female

DRUGS (1)
  1. SYMBICORT [Suspect]
     Dosage: 320/9 UG UNKNOWN FREQUENCY
     Route: 055

REACTIONS (2)
  - HAEMOPTYSIS [None]
  - THROAT IRRITATION [None]
